FAERS Safety Report 8576670-3 (Version None)
Quarter: 2012Q3

REPORT INFORMATION
  Report Type: 
  Country: None (occurrence: None)
  Receive Date: 20120807
  Receipt Date: 20120803
  Transmission Date: 20120928
  Serious: Yes (Other)
  Sender: FDA-Public Use
  Company Number: US-PFIZER INC-2012189470

PATIENT
  Age: 49 Year
  Sex: Female
  Weight: 100 kg

DRUGS (8)
  1. ISOSORBIDE [Concomitant]
     Dosage: UNK
     Dates: end: 20120101
  2. PRAVASTATIN [Concomitant]
     Dosage: UNK
     Dates: end: 20120101
  3. ZETIA [Concomitant]
     Dosage: UNK
     Dates: end: 20120101
  4. LIPITOR [Suspect]
     Indication: BLOOD CHOLESTEROL ABNORMAL
     Dosage: 80 MG, DAILY
     Route: 048
     Dates: start: 20060101, end: 20120101
  5. AMITRIPTYLINE [Concomitant]
     Dosage: UNK
     Dates: end: 20120101
  6. DIAZEPAM [Concomitant]
     Dosage: UNK
     Dates: end: 20120101
  7. NITROSTAT [Suspect]
     Indication: BLOOD CHOLESTEROL ABNORMAL
     Dosage: UNK
     Route: 060
     Dates: end: 20120101
  8. ASPIRIN [Concomitant]
     Dosage: UNK
     Dates: end: 20120101

REACTIONS (4)
  - CEREBROVASCULAR ACCIDENT [None]
  - MYOCARDIAL INFARCTION [None]
  - BLOOD TRIGLYCERIDES INCREASED [None]
  - BLOOD CHOLESTEROL INCREASED [None]
